FAERS Safety Report 25166374 (Version 1)
Quarter: 2025Q2

REPORT INFORMATION
  Report Type: Spontaneous
  Country: CN (occurrence: CN)
  Receive Date: 20250407
  Receipt Date: 20250407
  Transmission Date: 20250716
  Serious: Yes (Hospitalization)
  Sender: ABBVIE
  Company Number: CN-ABBVIE-6207383

PATIENT
  Age: 67 Year
  Sex: Female
  Weight: 49 kg

DRUGS (3)
  1. VENETOCLAX [Suspect]
     Active Substance: VENETOCLAX
     Indication: Chemotherapy
     Dosage: 400 MILLIGRAM
     Route: 048
     Dates: start: 20250316, end: 20250331
  2. SODIUM CHLORIDE [Concomitant]
     Active Substance: SODIUM CHLORIDE
     Indication: Vehicle solution use
     Dosage: 4 MILLILITER, 0.9%
     Route: 058
     Dates: start: 20250314, end: 20250320
  3. AZACITIDINE [Suspect]
     Active Substance: AZACITIDINE
     Indication: Chemotherapy
     Dosage: 0.1 GRAM
     Route: 058
     Dates: start: 20250314, end: 20250320

REACTIONS (5)
  - Myelosuppression [Recovering/Resolving]
  - Fatigue [Unknown]
  - Chest discomfort [Unknown]
  - Dizziness [Unknown]
  - Pyrexia [Recovered/Resolved]

NARRATIVE: CASE EVENT DATE: 20250325
